FAERS Safety Report 10162076 (Version 1)
Quarter: 2014Q2

REPORT INFORMATION
  Report Type: Spontaneous
  Country: AU (occurrence: AU)
  Receive Date: 20140509
  Receipt Date: 20140509
  Transmission Date: 20141212
  Serious: Yes (Other)
  Sender: FDA-Public Use
  Company Number: AU-AMGEN INC.-AUSSP2014032284

PATIENT
  Age: 6 Year
  Sex: Female
  Weight: 18 kg

DRUGS (10)
  1. PROLIA [Suspect]
     Indication: OSTEOPOROSIS
     Dosage: 4 MG, UNK
     Route: 065
     Dates: start: 201401
  2. FRUSEMIDE /00032601/ [Suspect]
     Indication: PRODUCT USED FOR UNKNOWN INDICATION
     Route: 065
  3. OMEPRAZOLE [Suspect]
     Indication: PRODUCT USED FOR UNKNOWN INDICATION
     Route: 065
  4. ARANESP [Concomitant]
  5. SOTALOL [Concomitant]
  6. THYROXINE [Concomitant]
  7. CLEXANE [Concomitant]
  8. GABAPENTIN [Concomitant]
  9. VITAMIN D                          /00107901/ [Concomitant]
  10. CALCIUM [Concomitant]

REACTIONS (1)
  - Pancreatitis [Not Recovered/Not Resolved]
